FAERS Safety Report 25896605 (Version 1)
Quarter: 2025Q4

REPORT INFORMATION
  Report Type: Spontaneous
  Country: BR (occurrence: BR)
  Receive Date: 20251008
  Receipt Date: 20251008
  Transmission Date: 20260118
  Serious: Yes (Hospitalization, Other)
  Sender: AMERICAN REGENT
  Company Number: BR-AMERICAN REGENT INC-2025003497

PATIENT
  Age: 22 Year
  Sex: Female

DRUGS (1)
  1. FERINJECT [Suspect]
     Active Substance: FERRIC CARBOXYMALTOSE
     Indication: Iron deficiency anaemia
     Dosage: UNK
     Route: 042
     Dates: start: 20250117, end: 20250117

REACTIONS (2)
  - Skin plaque [Recovered/Resolved]
  - Erythema [Recovered/Resolved]

NARRATIVE: CASE EVENT DATE: 20250117
